FAERS Safety Report 16333468 (Version 5)
Quarter: 2019Q3

REPORT INFORMATION
  Report Type: Spontaneous
  Country: US (occurrence: US)
  Receive Date: 20190520
  Receipt Date: 20190807
  Transmission Date: 20191004
  Serious: Yes (Hospitalization, Other)
  Sender: FDA-Public Use
  Company Number: US-009507513-1905USA005407

PATIENT
  Age: 43 Year
  Sex: Female

DRUGS (3)
  1. STEGLATRO [Suspect]
     Active Substance: ERTUGLIFLOZIN PIDOLATE
     Dosage: ONE TABLET (1 DOSAGE FORM), ONCE A DAY (QD), ROUTE: PILL
     Route: 048
     Dates: start: 20190507, end: 20190507
  2. STEGLATRO [Suspect]
     Active Substance: ERTUGLIFLOZIN PIDOLATE
     Indication: DIABETES MELLITUS
     Dosage: 15 MILLIGRAM, QD
     Route: 048
     Dates: start: 20190412, end: 201905
  3. INSULIN [Concomitant]
     Active Substance: INSULIN NOS
     Dosage: UNK

REACTIONS (5)
  - Diabetic ketoacidosis [Recovered/Resolved]
  - Hypertension [Recovering/Resolving]
  - Shock [Recovering/Resolving]
  - Gastrointestinal disorder [Unknown]
  - Heart rate increased [Recovering/Resolving]

NARRATIVE: CASE EVENT DATE: 2019
